FAERS Safety Report 15080129 (Version 1)
Quarter: 2018Q2

REPORT INFORMATION
  Report Type: Spontaneous
  Country: DE (occurrence: DE)
  Receive Date: 20180627
  Receipt Date: 20180627
  Transmission Date: 20180711
  Serious: Yes (Death)
  Sender: FDA-Public Use
  Company Number: DE-ANIPHARMA-2018-DE-000118

PATIENT
  Sex: Male

DRUGS (14)
  1. CANDESARTAN HCT [Suspect]
     Active Substance: CANDESARTAN CILEXETIL\HYDROCHLOROTHIAZIDE
     Route: 048
  2. APIDRA [Suspect]
     Active Substance: INSULIN GLULISINE
     Route: 065
  3. SEROQUEL [Suspect]
     Active Substance: QUETIAPINE FUMARATE
     Route: 048
  4. BISOPROLOL [Suspect]
     Active Substance: BISOPROLOL
     Route: 065
  5. TAMSULOSIN [Suspect]
     Active Substance: TAMSULOSIN
     Route: 065
  6. DONEPEZIL. [Suspect]
     Active Substance: DONEPEZIL
     Route: 065
  7. METFORMIN [Suspect]
     Active Substance: METFORMIN HYDROCHLORIDE
     Route: 065
  8. SIMVASTATIN. [Suspect]
     Active Substance: SIMVASTATIN
     Route: 065
  9. LANTUS [Suspect]
     Active Substance: INSULIN GLARGINE
     Route: 065
  10. RISPERDAL [Suspect]
     Active Substance: RISPERIDONE
     Route: 065
  11. ALLOPURINOL. [Suspect]
     Active Substance: ALLOPURINOL
     Route: 065
  12. TOREM [Suspect]
     Active Substance: TORSEMIDE
     Route: 065
  13. FALITHROM [Suspect]
     Active Substance: PHENPROCOUMON
     Route: 065
  14. LEVOMEPROMAZIN [Suspect]
     Active Substance: LEVOMEPROMAZINE
     Route: 065

REACTIONS (9)
  - Renal failure [Unknown]
  - Haematoma [Unknown]
  - Cognitive disorder [Unknown]
  - Contraindicated product administered [Unknown]
  - Gastrointestinal haemorrhage [Unknown]
  - Balance disorder [Unknown]
  - Death [Fatal]
  - Blood glucose fluctuation [Unknown]
  - Urinary incontinence [Unknown]

NARRATIVE: CASE EVENT DATE: 2017
